APPROVED DRUG PRODUCT: CEFUROXIME AXETIL
Active Ingredient: CEFUROXIME AXETIL
Strength: EQ 500MG BASE
Dosage Form/Route: TABLET;ORAL
Application: A065308 | Product #003 | TE Code: AB
Applicant: AUROBINDO PHARMA LTD
Approved: Mar 29, 2006 | RLD: No | RS: Yes | Type: RX